FAERS Safety Report 8288777-9 (Version None)
Quarter: 2012Q2

REPORT INFORMATION
  Report Type: 
  Country: None (occurrence: None)
  Receive Date: 20120417
  Receipt Date: 20120405
  Transmission Date: 20120825
  Serious: No
  Sender: FDA-Public Use
  Company Number: US-BIOGENIDEC-2012BI012363

PATIENT
  Age: 54 Year
  Sex: Female

DRUGS (5)
  1. AVONEX [Concomitant]
     Indication: MULTIPLE SCLEROSIS
     Route: 030
     Dates: start: 19991125
  2. AVONEX [Concomitant]
     Route: 030
     Dates: start: 20050802, end: 20051101
  3. TYSABRI [Suspect]
     Route: 042
  4. AVONEX [Concomitant]
     Route: 030
     Dates: start: 20060901
  5. TYSABRI [Suspect]
     Indication: MULTIPLE SCLEROSIS
     Route: 042
     Dates: start: 20060911

REACTIONS (1)
  - BALANCE DISORDER [None]
